FAERS Safety Report 12876557 (Version 2)
Quarter: 2016Q4

REPORT INFORMATION
  Report Type: Report from Study
  Country: AT (occurrence: AT)
  Receive Date: 20161024
  Receipt Date: 20161111
  Transmission Date: 20170207
  Serious: Yes (Other)
  Sender: FDA-Public Use
  Company Number: AT-BAYER-2016-168486

PATIENT
  Age: 32 Year
  Sex: Female

DRUGS (2)
  1. JAYDESS [Suspect]
     Active Substance: LEVONORGESTREL
     Indication: CONTRACEPTION
     Dosage: 14 MCG/24HR, CONT
     Route: 015
     Dates: start: 20160204, end: 20161003
  2. JAYDESS [Suspect]
     Active Substance: LEVONORGESTREL
     Indication: CONTRACEPTION
     Dosage: 14 MCG/24HR, CONT
     Route: 015
     Dates: start: 20160204, end: 20161003

REACTIONS (4)
  - Renal colic [None]
  - Ectopic pregnancy with contraceptive device [None]
  - Drug ineffective [None]
  - Amenorrhoea [None]

NARRATIVE: CASE EVENT DATE: 201607
